FAERS Safety Report 14334448 (Version 3)
Quarter: 2019Q2

REPORT INFORMATION
  Report Type: Spontaneous
  Country: US (occurrence: US)
  Receive Date: 20171228
  Receipt Date: 20190625
  Transmission Date: 20190711
  Serious: Yes (Hospitalization, Other)
  Sender: FDA-Public Use
  Company Number: US-INDIVIOR LIMITED-INDV-107100-2017

PATIENT
  Age: 58 Year
  Sex: Female

DRUGS (1)
  1. SUBOXONE [Suspect]
     Active Substance: BUPRENORPHINE HYDROCHLORIDE\NALOXONE HYDROCHLORIDE
     Indication: PAIN
     Dosage: UNK
     Route: 065

REACTIONS (16)
  - Gastrointestinal perforation [Recovered/Resolved]
  - Sepsis [Recovered/Resolved]
  - Abscess intestinal [Recovered/Resolved]
  - Ascites [Recovered/Resolved]
  - Peritonitis [Recovered/Resolved]
  - Peritoneal haemorrhage [Recovered/Resolved]
  - Hepatitis C [Not Recovered/Not Resolved]
  - Syncope [Recovered/Resolved]
  - Gastrointestinal haemorrhage [Recovered/Resolved]
  - Constipation [Recovered/Resolved]
  - Off label use [Unknown]
  - Necrosis [Recovered/Resolved]
  - Splenic rupture [Recovered/Resolved]
  - Hypotension [Recovered/Resolved]
  - Faecaloma [Recovered/Resolved]
  - Haematochezia [Recovered/Resolved]
